FAERS Safety Report 11280041 (Version 1)
Quarter: 2015Q3

REPORT INFORMATION
  Report Type: Spontaneous
  Country: US (occurrence: US)
  Receive Date: 20150717
  Receipt Date: 20150717
  Transmission Date: 20151125
  Serious: No
  Sender: FDA-Public Use
  Company Number: US-GALDERMA-US15002049

PATIENT
  Age: 64 Year
  Sex: Female
  Weight: 50 kg

DRUGS (16)
  1. SEROQUEL [Concomitant]
     Active Substance: QUETIAPINE FUMARATE
     Indication: SLEEP DISORDER
     Dosage: 50MG
     Route: 061
  2. COCONUT OIL [Concomitant]
     Active Substance: COCONUT OIL
     Indication: PROPHYLAXIS AGAINST SOLAR RADIATION
  3. IBUPROFEN. [Concomitant]
     Active Substance: IBUPROFEN
     Indication: BACK PAIN
     Dosage: 600MG
     Route: 048
  4. BACLOFEN. [Concomitant]
     Active Substance: BACLOFEN
     Indication: HYPOTONIA
  5. TRAMADOL. [Concomitant]
     Active Substance: TRAMADOL
     Indication: BACK PAIN
     Dosage: 50 MG
     Route: 048
  6. COLOR SCIENCE TINTED POWDER MOISTURIZER WITH SPF 50 [Concomitant]
     Indication: THERAPEUTIC SKIN CARE TOPICAL
     Route: 061
     Dates: start: 201503
  7. CETAPHIL [Suspect]
     Active Substance: AVOBENZONE\OCTOCRYLENE\TRICLOSAN
     Indication: THERAPEUTIC SKIN CARE TOPICAL
     Route: 061
     Dates: start: 201411, end: 20150409
  8. COLOR SCIENCE TINTED POWDER MOISTURIZER WITH SPF 50 [Concomitant]
     Indication: PROPHYLAXIS AGAINST SOLAR RADIATION
  9. KLONOPIN [Concomitant]
     Active Substance: CLONAZEPAM
     Indication: BACK PAIN
     Dosage: 0.5MG
     Route: 061
  10. SOOLANTRA [Suspect]
     Active Substance: IVERMECTIN
     Indication: RASH
     Dosage: 1%
     Route: 061
     Dates: start: 201503
  11. ELIDEL [Concomitant]
     Active Substance: PIMECROLIMUS
     Indication: BIOPSY SKIN
     Route: 061
     Dates: start: 201504
  12. CLARITIN [Concomitant]
     Active Substance: LORATADINE
     Indication: HYPERSENSITIVITY
     Route: 048
  13. PAXIL (PAROXETINE) [Concomitant]
     Indication: ANXIETY
     Dosage: 0.5MG
     Route: 048
  14. COCONUT OIL [Concomitant]
     Active Substance: COCONUT OIL
     Indication: DRY SKIN PROPHYLAXIS
     Route: 061
  15. PAXIL (PAROXETINE) [Concomitant]
     Indication: DEPRESSION
  16. CLODERM [Concomitant]
     Active Substance: CLOCORTOLONE PIVALATE
     Indication: RASH PAPULAR
     Route: 061
     Dates: start: 201504

REACTIONS (7)
  - Dermatitis [Recovered/Resolved]
  - Rosacea [Not Recovered/Not Resolved]
  - Product use issue [Recovered/Resolved]
  - Dermatitis allergic [Recovered/Resolved]
  - Erythema [Not Recovered/Not Resolved]
  - Rash papular [Recovered/Resolved]
  - Skin irritation [Recovered/Resolved]

NARRATIVE: CASE EVENT DATE: 201503
